FAERS Safety Report 10178657 (Version 2)
Quarter: 2014Q3

REPORT INFORMATION
  Report Type: Spontaneous
  Country: US (occurrence: US)
  Receive Date: 20140519
  Receipt Date: 20140924
  Transmission Date: 20150326
  Serious: Yes (Hospitalization, Other)
  Sender: FDA-Public Use
  Company Number: US-BAYER-2014-072278

PATIENT
  Age: 40 Year
  Sex: Female
  Weight: 68.27 kg

DRUGS (6)
  1. CITALOPRAM [Concomitant]
     Active Substance: CITALOPRAM HYDROBROMIDE
     Dosage: 40 MG, UNK
  2. TUMS [CALCIUM CARBONATE] [Concomitant]
  3. VITAMIN B12 [Concomitant]
     Active Substance: CYANOCOBALAMIN
  4. VITAMIN D [Concomitant]
     Active Substance: CHOLECALCIFEROL
  5. PRILOSEC [Concomitant]
     Active Substance: OMEPRAZOLE MAGNESIUM
     Dosage: 20 MG, UNK
  6. MIRENA [Suspect]
     Active Substance: LEVONORGESTREL
     Indication: CONTRACEPTION
     Dosage: 20 MCG/24HR, CONT
     Route: 015
     Dates: start: 20070406, end: 20120404

REACTIONS (10)
  - Pain [None]
  - Asthenia [None]
  - Injury [None]
  - Embedded device [None]
  - Device difficult to use [None]
  - Hysterectomy [None]
  - Post procedural haemorrhage [None]
  - Medical device complication [None]
  - Uterine leiomyoma [None]
  - Emotional distress [None]

NARRATIVE: CASE EVENT DATE: 201202
